FAERS Safety Report 6489693-5 (Version None)
Quarter: 2009Q4

REPORT INFORMATION
  Report Type: 
  Country: None (occurrence: None)
  Receive Date: 20091207
  Receipt Date: 20091125
  Transmission Date: 20100525
  Serious: Yes (Other)
  Sender: FDA-Public Use
  Company Number: FLUDARABINE-OCT-05

PATIENT
  Age: 32 Year
  Sex: Female

DRUGS (3)
  1. FLUDARABINE [Suspect]
     Indication: ACUTE MYELOID LEUKAEMIA
     Dosage: 30 MG/M2, DAY 1-5
  2. CYTOSINE ARABINOSIDE [Concomitant]
  3. IDARUBICIN HCL [Concomitant]

REACTIONS (7)
  - ACUTE MYELOID LEUKAEMIA RECURRENT [None]
  - APLASIA [None]
  - DRUG EXPOSURE DURING PREGNANCY [None]
  - HAEMOGLOBIN DECREASED [None]
  - INTRA-UTERINE DEATH [None]
  - PLATELET COUNT DECREASED [None]
  - PURPURA [None]
